FAERS Safety Report 10098193 (Version 1)
Quarter: 2014Q2

REPORT INFORMATION
  Report Type: Spontaneous
  Country: US (occurrence: US)
  Receive Date: 20140423
  Receipt Date: 20140423
  Transmission Date: 20141212
  Serious: No
  Sender: FDA-Public Use
  Company Number: US-BRISTOL-MYERS SQUIBB COMPANY-19976638

PATIENT
  Age: 86 Year
  Sex: Male
  Weight: 83.9 kg

DRUGS (3)
  1. YERVOY [Suspect]
  2. CRESTOR [Concomitant]
  3. BENICAR HCT [Concomitant]

REACTIONS (2)
  - Fatigue [Unknown]
  - Constipation [Unknown]
